FAERS Safety Report 12482019 (Version 1)
Quarter: 2016Q2

REPORT INFORMATION
  Report Type: Spontaneous
  Country: JP (occurrence: JP)
  Receive Date: 20160620
  Receipt Date: 20160620
  Transmission Date: 20160815
  Serious: Yes (Hospitalization)
  Sender: FDA-Public Use
  Company Number: PHJP1997JP001096

PATIENT
  Age: 48 Year
  Sex: Female

DRUGS (6)
  1. BUP-4 [Concomitant]
     Active Substance: PROPIVERINE
     Indication: URINARY INCONTINENCE
     Dosage: 10 MG, UNK
     Route: 048
     Dates: start: 19960406, end: 19970419
  2. PROGESTON//MEDROXYPROGESTERONE ACETATE [Suspect]
     Active Substance: MEDROXYPROGESTERONE ACETATE
     Indication: MENOPAUSAL SYMPTOMS
     Dosage: 2.5 MG, UNK
     Route: 048
     Dates: start: 19960323, end: 19970419
  3. AMOBAN [Concomitant]
     Active Substance: ZOPICLONE
     Indication: INSOMNIA
     Dosage: 7.5 MG, UNK
     Route: 048
     Dates: start: 19960810, end: 19970419
  4. DELUX C [Concomitant]
     Indication: MENOPAUSAL SYMPTOMS
     Dosage: 3.0 G, UNK
     Route: 048
     Dates: start: 19960511, end: 19970419
  5. TOKISYAKUYAKUSAN [Concomitant]
     Indication: PRODUCT USED FOR UNKNOWN INDICATION
     Dosage: 60 G
     Route: 048
     Dates: start: 19960323, end: 19970419
  6. ESTRADERM [Suspect]
     Active Substance: ESTRADIOL
     Indication: MENOPAUSAL SYMPTOMS
     Dosage: 2 MG, UNK
     Route: 061
     Dates: start: 19960323, end: 19970419

REACTIONS (1)
  - Cerebral infarction [Recovered/Resolved]

NARRATIVE: CASE EVENT DATE: 19970429
